FAERS Safety Report 6341132-0 (Version None)
Quarter: 2009Q3

REPORT INFORMATION
  Report Type: 
  Country: None (occurrence: None)
  Receive Date: 20090904
  Receipt Date: 20090223
  Transmission Date: 20100115
  Serious: No
  Sender: FDA-Public Use
  Company Number: A0765900A

PATIENT
  Age: 58 Year
  Sex: Male

DRUGS (4)
  1. REQUIP XL [Suspect]
     Indication: PARKINSON'S DISEASE
     Dosage: 4MG IN THE MORNING
     Route: 048
     Dates: start: 20090121
  2. OMEGA 3 FATTY ACID [Concomitant]
  3. CO-Q10 [Concomitant]
  4. VITAMIN D CALCIUM [Concomitant]

REACTIONS (3)
  - HYPOTENSION [None]
  - MALAISE [None]
  - SYNCOPE [None]
